FAERS Safety Report 25839556 (Version 1)
Quarter: 2025Q3

REPORT INFORMATION
  Report Type: Spontaneous
  Country: CA (occurrence: CA)
  Receive Date: 20250924
  Receipt Date: 20250924
  Transmission Date: 20251020
  Serious: Yes (Death, Other)
  Sender: AUROBINDO
  Company Number: CA-AUROBINDO-AUR-APL-2025-048359

PATIENT
  Age: 60 Year
  Sex: Female
  Weight: 105 kg

DRUGS (1)
  1. TRANEXAMIC ACID [Suspect]
     Active Substance: TRANEXAMIC ACID
     Indication: Knee arthroplasty
     Dosage: 2 GRAM, ONCE A DAY
     Route: 042

REACTIONS (2)
  - Cerebral artery thrombosis [Fatal]
  - Cerebrovascular accident [Fatal]
